FAERS Safety Report 23170460 (Version 2)
Quarter: 2023Q4

REPORT INFORMATION
  Report Type: Report from Study
  Country: AR (occurrence: AR)
  Receive Date: 20231110
  Receipt Date: 20231203
  Transmission Date: 20240109
  Serious: Yes (Death, Life-Threatening, Hospitalization, Other)
  Sender: FDA-Public Use
  Company Number: AR-002147023-NVSC2023AR239790

PATIENT
  Age: 28 Year
  Sex: Female

DRUGS (1)
  1. RIBOCICLIB [Suspect]
     Active Substance: RIBOCICLIB
     Indication: Breast cancer metastatic
     Dosage: 600 MG, QD
     Route: 048
     Dates: start: 20230830

REACTIONS (3)
  - Death [Fatal]
  - Feeling abnormal [Unknown]
  - Coma [Unknown]

NARRATIVE: CASE EVENT DATE: 20231108
